FAERS Safety Report 12395152 (Version 2)
Quarter: 2016Q2

REPORT INFORMATION
  Report Type: Spontaneous
  Country: US (occurrence: US)
  Receive Date: 20160523
  Receipt Date: 20160531
  Transmission Date: 20160815
  Serious: Yes (Other)
  Sender: FDA-Public Use
  Company Number: US-BRISTOL-MYERS SQUIBB COMPANY-BMS-2016-038477

PATIENT
  Sex: Male

DRUGS (1)
  1. OPDIVO [Suspect]
     Active Substance: NIVOLUMAB
     Indication: NON-SMALL CELL LUNG CANCER
     Dosage: UNK, Q2WK
     Route: 065

REACTIONS (20)
  - Confusional state [Unknown]
  - Visual impairment [Unknown]
  - Frequent bowel movements [Unknown]
  - Arthralgia [Unknown]
  - Dizziness [Unknown]
  - Headache [Unknown]
  - Pneumonitis [Unknown]
  - Memory impairment [Unknown]
  - Weight increased [Unknown]
  - Libido decreased [Unknown]
  - Vision blurred [Recovering/Resolving]
  - Somnolence [Unknown]
  - Myalgia [Recovering/Resolving]
  - Feeling cold [Unknown]
  - Dysphonia [Unknown]
  - Musculoskeletal stiffness [Unknown]
  - Insomnia [Unknown]
  - Asthenia [Not Recovered/Not Resolved]
  - Irritability [Unknown]
  - Urine output decreased [Unknown]
